FAERS Safety Report 7987227-7 (Version None)
Quarter: 2011Q4

REPORT INFORMATION
  Report Type: 
  Country: None (occurrence: None)
  Receive Date: 20111216
  Receipt Date: 20111210
  Transmission Date: 20120403
  Serious: Yes (Hospitalization)
  Sender: FDA-Public Use
  Company Number: US-BRISTOL-MYERS SQUIBB COMPANY-15875438

PATIENT
  Age: 46 Year
  Sex: Female
  Weight: 47 kg

DRUGS (1)
  1. IPILIMUMAB [Suspect]
     Indication: MALIGNANT MELANOMA
     Dosage: DOSE 05-MAY-2011, 497 MG COURSES: 5
     Route: 042
     Dates: start: 20110323, end: 20110526

REACTIONS (7)
  - GASTRITIS [None]
  - DEHYDRATION [None]
  - ABDOMINAL PAIN [None]
  - VOMITING [None]
  - ENTEROCOLITIS [None]
  - CHOLECYSTITIS [None]
  - ABDOMINAL DISTENSION [None]
